FAERS Safety Report 12429707 (Version 6)
Quarter: 2016Q3

REPORT INFORMATION
  Report Type: Report from Study
  Country: CA (occurrence: CA)
  Receive Date: 20160602
  Receipt Date: 20160830
  Transmission Date: 20161109
  Serious: Yes (Other)
  Sender: FDA-Public Use
  Company Number: PHHY2016CA075372

PATIENT
  Age: 73 Year
  Sex: Male

DRUGS (3)
  1. TAFINLAR [Suspect]
     Active Substance: DABRAFENIB MESYLATE
     Indication: METASTATIC MALIGNANT MELANOMA
     Dosage: 300 MG, QD
     Route: 048
     Dates: start: 20160430
  2. MEKINIST [Suspect]
     Active Substance: TRAMETINIB DIMETHYL SULFOXIDE
     Indication: METASTATIC MALIGNANT MELANOMA
     Dosage: 2 MG, QD
     Route: 048
     Dates: start: 20160430, end: 201605
  3. MEKINIST [Suspect]
     Active Substance: TRAMETINIB DIMETHYL SULFOXIDE
     Dosage: 1 MG, QD
     Route: 048
     Dates: start: 201605, end: 20160620

REACTIONS (8)
  - Platelet count decreased [Recovering/Resolving]
  - Multiple sclerosis [Unknown]
  - Intervertebral disc degeneration [Unknown]
  - Electrocardiogram QT prolonged [Unknown]
  - Cerebral atrophy [Unknown]
  - Haemosiderin stain [Unknown]
  - Heart rate irregular [Unknown]
  - Post-traumatic punctate intraepidermal haemorrhage [Unknown]

NARRATIVE: CASE EVENT DATE: 201605
